FAERS Safety Report 19667243 (Version 2)
Quarter: 2021Q3

REPORT INFORMATION
  Report Type: Spontaneous
  Country: GB (occurrence: GB)
  Receive Date: 20210806
  Receipt Date: 20210813
  Transmission Date: 20211014
  Serious: Yes (Other)
  Sender: FDA-Public Use
  Company Number: GB-PFIZER INC-202100969751

PATIENT
  Age: 63 Year
  Sex: Male

DRUGS (2)
  1. CARBOPLATIN. [Suspect]
     Active Substance: CARBOPLATIN
     Dosage: UNK, CYCLIC
  2. ETOPOSIDE. [Suspect]
     Active Substance: ETOPOSIDE
     Dosage: UNK, CYCLIC

REACTIONS (1)
  - General physical health deterioration [Unknown]
